FAERS Safety Report 12166137 (Version 1)
Quarter: 2016Q1

REPORT INFORMATION
  Report Type: Spontaneous
  Country: US (occurrence: US)
  Receive Date: 20160309
  Receipt Date: 20160309
  Transmission Date: 20160526
  Serious: No
  Sender: FDA-Public Use
  Company Number: US-BAYER-2016-046851

PATIENT
  Sex: Female

DRUGS (1)
  1. ALEVE [Suspect]
     Active Substance: NAPROXEN SODIUM
     Indication: LIGAMENT SPRAIN
     Dosage: UNK
     Dates: start: 2016

REACTIONS (3)
  - Product use issue [None]
  - Product container issue [None]
  - Arthralgia [None]
